FAERS Safety Report 24069542 (Version 1)
Quarter: 2024Q3

REPORT INFORMATION
  Report Type: Spontaneous
  Country: VN (occurrence: VN)
  Receive Date: 20240710
  Receipt Date: 20240710
  Transmission Date: 20241016
  Serious: No
  Sender: ROCHE
  Company Number: VN-ROCHE-3477773

PATIENT
  Age: 70 Year
  Sex: Female

DRUGS (1)
  1. ALECTINIB [Suspect]
     Active Substance: ALECTINIB
     Indication: Lung carcinoma cell type unspecified stage III
     Dosage: 150MG 4 TABLETS X 2 TIMES/DAY
     Route: 065
     Dates: start: 20221101

REACTIONS (3)
  - Renal impairment [Recovered/Resolved]
  - Therapy partial responder [Unknown]
  - Anaemia [Unknown]

NARRATIVE: CASE EVENT DATE: 20221101
